FAERS Safety Report 11217595 (Version 2)
Quarter: 2015Q3

REPORT INFORMATION
  Report Type: Report from Study
  Country: BR (occurrence: BR)
  Receive Date: 20150625
  Receipt Date: 20150709
  Transmission Date: 20151125
  Serious: Yes (Other)
  Sender: FDA-Public Use
  Company Number: PHHY2014BR130269

PATIENT
  Age: 35 Year
  Sex: Female

DRUGS (4)
  1. NORTRIPTYLINE [Concomitant]
     Active Substance: NORTRIPTYLINE
     Indication: SLEEP DISORDER
     Dosage: 1 DF, QD
     Route: 048
  2. SANDOSTATIN LAR DEPOT [Suspect]
     Active Substance: OCTREOTIDE ACETATE
     Indication: PITUITARY TUMOUR
  3. SANDOSTATIN LAR DEPOT [Suspect]
     Active Substance: OCTREOTIDE ACETATE
     Indication: ACROMEGALY
     Dosage: 1 DF (AMPOULE), QMO
     Route: 030
     Dates: start: 20140922
  4. DOSTINEX [Suspect]
     Active Substance: CABERGOLINE
     Indication: PITUITARY TUMOUR
     Dosage: 1 DF, QW3 AT NIGHT 3 TIMES PER WEEK
     Route: 065

REACTIONS (12)
  - Depression [Not Recovered/Not Resolved]
  - Breast pain [Not Recovered/Not Resolved]
  - Diarrhoea [Unknown]
  - Malaise [Not Recovered/Not Resolved]
  - Hormone level abnormal [Not Recovered/Not Resolved]
  - Vomiting [Unknown]
  - Headache [Unknown]
  - Stomach mass [Not Recovered/Not Resolved]
  - Weight decreased [Not Recovered/Not Resolved]
  - Breast mass [Not Recovered/Not Resolved]
  - Abdominal pain upper [Not Recovered/Not Resolved]
  - Fatigue [Unknown]

NARRATIVE: CASE EVENT DATE: 20140923
